FAERS Safety Report 25389087 (Version 1)
Quarter: 2025Q2

REPORT INFORMATION
  Report Type: Spontaneous
  Country: US (occurrence: US)
  Receive Date: 20250603
  Receipt Date: 20250603
  Transmission Date: 20250716
  Serious: No
  Sender: AILEX PHARMACEUTICALS LLC
  Company Number: US-AP-2025-6604

PATIENT
  Sex: Female

DRUGS (2)
  1. CROMOLYN SODIUM [Suspect]
     Active Substance: CROMOLYN SODIUM
     Dosage: 4D,  QD
     Route: 065
  2. CROMOLYN SODIUM [Suspect]
     Active Substance: CROMOLYN SODIUM
     Dosage: 1 D,  QD
     Route: 065

REACTIONS (3)
  - Product availability issue [Unknown]
  - Intentional product use issue [Unknown]
  - Incorrect dose administered [Unknown]
